FAERS Safety Report 8506881-4 (Version None)
Quarter: 2012Q3

REPORT INFORMATION
  Report Type: 
  Country: None (occurrence: None)
  Receive Date: 20120712
  Receipt Date: 20120706
  Transmission Date: 20120928
  Serious: No
  Sender: FDA-Public Use
  Company Number: US-PFIZER INC-2012142486

PATIENT
  Sex: Male
  Weight: 82.086 kg

DRUGS (11)
  1. SUTENT [Suspect]
     Dosage: 50 MG, UNK
     Dates: start: 20120614
  2. PANTOPRAZOLE [Concomitant]
     Dosage: UNK
  3. LEVOTHYROXINE [Concomitant]
     Dosage: UNK
  4. CALCITRIOL [Concomitant]
     Dosage: UNK
  5. LISINOPRIL [Concomitant]
     Dosage: UNK
  6. PROLEUKIN [Concomitant]
     Indication: ATRIAL FIBRILLATION
     Dosage: UNK
  7. AMLODIPINE [Concomitant]
     Dosage: UNK
  8. SUTENT [Suspect]
     Dosage: 50 MG, EVERY THREE DAYS OUT OF FOUR DAYS
     Dates: end: 20120514
  9. FLUDROCORTISONE [Concomitant]
     Dosage: UNK
  10. SUTENT [Suspect]
     Indication: METASTATIC RENAL CELL CARCINOMA
     Dosage: 50 MG, FOR 42  DAY CYCLES
     Dates: start: 20110103, end: 20111218
  11. HYDROCHLOROTHIAZIDE [Concomitant]
     Dosage: UNK

REACTIONS (4)
  - WHITE BLOOD CELL COUNT DECREASED [None]
  - BLOOD CREATININE INCREASED [None]
  - PALMAR-PLANTAR ERYTHRODYSAESTHESIA SYNDROME [None]
  - DEHYDRATION [None]
